FAERS Safety Report 12009388 (Version 1)
Quarter: 2016Q1

REPORT INFORMATION
  Report Type: Report from Study
  Country: US (occurrence: US)
  Receive Date: 20160205
  Receipt Date: 20160205
  Transmission Date: 20160526
  Serious: Yes (Other)
  Sender: FDA-Public Use
  Company Number: US-ACCORD-037570

PATIENT
  Age: 8 Year
  Sex: Female

DRUGS (5)
  1. METHOTREXATE [Suspect]
     Active Substance: METHOTREXATE
     Indication: ACUTE LYMPHOCYTIC LEUKAEMIA
     Dosage: RECEIVED INTRATHECAL.??PHASE OF TREATMENT: INTERIM MAINTENANCE 1 (IM1)
     Route: 037
  2. VINCRISTINE [Concomitant]
     Active Substance: VINCRISTINE
  3. ONDANSETRON [Concomitant]
     Active Substance: ONDANSETRON
  4. SULFAMETHOXAZOLE/TRIMETHOPRIM [Concomitant]
  5. FENTANYL. [Concomitant]
     Active Substance: FENTANYL

REACTIONS (4)
  - Asthenia [Unknown]
  - Facial paralysis [Unknown]
  - Neurotoxicity [Unknown]
  - Aphasia [Unknown]
